FAERS Safety Report 4428779-3 (Version None)
Quarter: 2004Q3

REPORT INFORMATION
  Report Type: 
  Country: None (occurrence: None)
  Receive Date: 20040818
  Receipt Date: 20040616
  Transmission Date: 20050211
  Serious: Yes (Hospitalization)
  Sender: FDA-Public Use
  Company Number: US-BRISTOL-MYERS SQUIBB COMPANY-12616710

PATIENT
  Age: 50 Year
  Sex: Male

DRUGS (2)
  1. GATIFLOXACIN [Suspect]
     Indication: INFECTION
     Route: 048
     Dates: start: 20021015, end: 20021016
  2. PRINIVIL [Suspect]
     Indication: HYPERTENSION
     Route: 048
     Dates: start: 20020301, end: 20021016

REACTIONS (1)
  - ANGIONEUROTIC OEDEMA [None]
